FAERS Safety Report 8867489 (Version 1)
Quarter: 2012Q4

REPORT INFORMATION
  Report Type: 
  Country: US (occurrence: US)
  Receive Date: 20121025
  Receipt Date: 20121025
  Transmission Date: 20130627
  Serious: No
  Sender: FDA-Public Use
  Company Number: US-AMGEN-USASP2012016917

PATIENT
  Sex: Male
  Weight: 87.08 kg

DRUGS (8)
  1. ENBREL [Suspect]
     Indication: PRODUCT USED FOR UNKNOWN INDICATION
     Dosage: 25 mg, 2 times/wk
     Route: 058
  2. METOPROLOL TARTRATE [Concomitant]
     Dosage: 25 mg, UNK
  3. METHOTREXATE [Concomitant]
     Dosage: 2.5 mg, UNK
  4. ASPIRIN BUFFERED [Concomitant]
     Dosage: 325 mg, UNK
  5. MULTIVITAMIN                       /00097801/ [Concomitant]
  6. CALCIUM CITRATE WITH VITAMIN D [Concomitant]
  7. GLUCOSAMINE + CHONDROITIN          /01430901/ [Concomitant]
  8. TRAMADOL HCL [Concomitant]
     Dosage: 50 mg, UNK

REACTIONS (1)
  - Injection site bruising [Unknown]
